FAERS Safety Report 8329402 (Version 5)
Quarter: 2013Q1

REPORT INFORMATION
  Report Type: Spontaneous
  Country: US (occurrence: US)
  Receive Date: 20120110
  Receipt Date: 20130301
  Transmission Date: 20140127
  Serious: Yes (Hospitalization, Other)
  Sender: FDA-Public Use
  Company Number: US-009507513-1201USA00765

PATIENT
  Sex: Female
  Weight: 78.91 kg

DRUGS (6)
  1. FOSAMAX [Suspect]
     Indication: OSTEOPENIA
     Dosage: 10 MG, UNK
     Route: 048
     Dates: start: 19990126, end: 20010514
  2. FOSAMAX [Suspect]
     Dosage: 70 MG, UNK
     Route: 048
     Dates: start: 20010514, end: 20040130
  3. FOSAMAX [Suspect]
     Dosage: 70 MG, UNK
     Route: 048
     Dates: start: 20040226, end: 20040422
  4. FOSAMAX [Suspect]
     Dosage: 70 MG, UNK
     Route: 048
     Dates: start: 20040422, end: 20080222
  5. FOSAMAX [Suspect]
     Dosage: 70 MG, UNK
     Route: 048
     Dates: start: 20080222, end: 20100222
  6. FOSAMAX [Suspect]
     Dosage: 70 MG, UNK
     Route: 048
     Dates: start: 20091116, end: 20100417

REACTIONS (35)
  - Colitis ischaemic [Unknown]
  - Anaemia postoperative [Unknown]
  - Fall [Unknown]
  - Tachycardia [Unknown]
  - Femur fracture [Recovered/Resolved]
  - Femur fracture [Recovered/Resolved]
  - Oedema peripheral [Unknown]
  - Low turnover osteopathy [Unknown]
  - Rib fracture [Unknown]
  - Rotator cuff syndrome [Unknown]
  - Vitamin D deficiency [Unknown]
  - Calcium deficiency [Unknown]
  - Dry eye [Unknown]
  - Bone disorder [Unknown]
  - Ovarian cyst [Unknown]
  - Fall [Unknown]
  - Arthropathy [Unknown]
  - Hiatus hernia [Unknown]
  - Gastric disorder [Unknown]
  - Oesophageal disorder [Unknown]
  - Rotator cuff syndrome [Recovered/Resolved]
  - Contusion [Unknown]
  - Rotator cuff syndrome [Unknown]
  - Rotator cuff syndrome [Unknown]
  - Arthritis [Unknown]
  - Osteoarthritis [Unknown]
  - Fall [Unknown]
  - Rib fracture [Unknown]
  - Stress fracture [Unknown]
  - Fall [Unknown]
  - Rib fracture [Unknown]
  - Back pain [Unknown]
  - Arthralgia [Unknown]
  - Pain in extremity [Recovered/Resolved]
  - Constipation [Unknown]
